FAERS Safety Report 8600525-9 (Version None)
Quarter: 2012Q3

REPORT INFORMATION
  Report Type: 
  Country: None (occurrence: None)
  Receive Date: 20120808
  Receipt Date: 20120808
  Transmission Date: 20120928
  Serious: Yes (Other)
  Sender: FDA-Public Use
  Company Number: None

PATIENT
  Age: 82 Year
  Sex: Female
  Weight: 40.3701 kg

DRUGS (1)
  1. CALCITONIN SALMON [Suspect]
     Indication: OSTEOPOROSIS
     Dosage: ONE SPRAY ONCE A DAY NASAL
     Route: 045
     Dates: start: 20120703, end: 20120705

REACTIONS (7)
  - PRURITUS [None]
  - DIZZINESS [None]
  - DRY MOUTH [None]
  - ANXIETY [None]
  - EPISTAXIS [None]
  - ARTHRITIS [None]
  - THIRST [None]
